FAERS Safety Report 11294290 (Version 2)
Quarter: 2015Q3

REPORT INFORMATION
  Report Type: Spontaneous
  Country: US (occurrence: US)
  Receive Date: 20150722
  Receipt Date: 20150821
  Transmission Date: 20151125
  Serious: No
  Sender: FDA-Public Use
  Company Number: US-ELI_LILLY_AND_COMPANY-US200804003888

PATIENT
  Age: 74 Year
  Sex: Female

DRUGS (2)
  1. CYMBALTA [Suspect]
     Active Substance: DULOXETINE HYDROCHLORIDE
     Indication: ARTHRALGIA
     Dosage: 30 MG, UNK
     Dates: start: 20080402
  2. EVISTA [Suspect]
     Active Substance: RALOXIFENE HYDROCHLORIDE
     Indication: OSTEOPOROSIS
     Dosage: UNK, UNK
     Dates: start: 20080402

REACTIONS (6)
  - Drug ineffective [Unknown]
  - Muscle spasms [Unknown]
  - Asthenia [Unknown]
  - Adverse drug reaction [Unknown]
  - Lethargy [Recovering/Resolving]
  - Increased appetite [Unknown]

NARRATIVE: CASE EVENT DATE: 200804
